FAERS Safety Report 18369290 (Version 2)
Quarter: 2021Q1

REPORT INFORMATION
  Report Type: Spontaneous
  Country: FR (occurrence: FR)
  Receive Date: 20201012
  Receipt Date: 20210107
  Transmission Date: 20210419
  Serious: Yes (Hospitalization, Disabling, Other)
  Sender: FDA-Public Use
  Company Number: FR-AUROBINDO-AUR-APL-2020-051013

PATIENT
  Age: 71 Year
  Sex: Male

DRUGS (2)
  1. DORZOLAMIDE+TIMOLOL DROP [Suspect]
     Active Substance: DORZOLAMIDE HYDROCHLORIDE\TIMOLOL MALEATE
     Indication: PRODUCT USED FOR UNKNOWN INDICATION
     Dosage: UNK
     Route: 065
  2. TIMOLOL;TRAVOPROST [Suspect]
     Active Substance: TIMOLOL\TRAVOPROST
     Indication: PRODUCT USED FOR UNKNOWN INDICATION
     Dosage: UNK
     Route: 065

REACTIONS (6)
  - Ischaemic stroke [Recovered/Resolved]
  - Cerebrovascular accident [Unknown]
  - Retinal artery occlusion [Unknown]
  - Visual acuity reduced [Recovered/Resolved]
  - Atrial fibrillation [Recovered/Resolved]
  - Palpitations [Recovered/Resolved]

NARRATIVE: CASE EVENT DATE: 20161022
